FAERS Safety Report 21966632 (Version 1)
Quarter: 2023Q1

REPORT INFORMATION
  Report Type: Spontaneous
  Country: SE (occurrence: SE)
  Receive Date: 20230208
  Receipt Date: 20230208
  Transmission Date: 20230418
  Serious: Yes (Life-Threatening, Hospitalization, Other)
  Sender: FDA-Public Use
  Company Number: SE-MLMSERVICE-20230125-4058905-1

PATIENT
  Age: 57 Year
  Sex: Male

DRUGS (3)
  1. TACROLIMUS [Suspect]
     Active Substance: TACROLIMUS
     Indication: Immunosuppressant drug therapy
     Dosage: WITH AN ADJUSTED DOSE FOR ACHIEVING A LEVEL OF 5-8 NG/ML
     Route: 048
  2. PREDNISOLONE [Suspect]
     Active Substance: PREDNISOLONE
     Indication: Immunosuppressant drug therapy
     Route: 048
  3. PREDNISOLONE [Suspect]
     Active Substance: PREDNISOLONE
     Indication: Immunosuppressant drug therapy
     Dosage: TAPERED TILL THE END OF 3 RD MONTH
     Route: 048

REACTIONS (4)
  - Cerebral fungal infection [Recovered/Resolved]
  - Brain abscess [Recovered/Resolved]
  - Sepsis [Recovered/Resolved]
  - Phaeohyphomycosis [Recovered/Resolved]
